FAERS Safety Report 8767232 (Version 2)
Quarter: 2012Q4

REPORT INFORMATION
  Report Type: 
  Country: IT (occurrence: IT)
  Receive Date: 20120904
  Receipt Date: 20120904
  Transmission Date: 20130627
  Serious: Yes (Death, Hospitalization)
  Sender: FDA-Public Use
  Company Number: IT-GLAXOSMITHKLINE-B0688373A

PATIENT
  Age: 71 Year
  Sex: Female

DRUGS (5)
  1. HERCEPTIN [Suspect]
     Indication: BREAST CANCER
     Dosage: 2MCK Weekly
     Route: 042
     Dates: start: 20100924, end: 20101102
  2. CEFTRIAXONE SODIUM [Concomitant]
     Dates: start: 20101027, end: 20101102
  3. LANOXIN [Concomitant]
     Dosage: 250MCG per day
     Route: 048
     Dates: start: 20101025, end: 20101102
  4. PIPERACILLIN SODIUM AND TAZOBACTAM SODIUM [Concomitant]
     Dosage: 13.5MG per day
     Route: 042
     Dates: start: 20101102, end: 20101103
  5. LAPATINIB TOSILATE [Suspect]
     Indication: BREAST CANCER
     Dosage: 1000MG per day
     Route: 048
     Dates: start: 20100924, end: 20101102

REACTIONS (5)
  - Breast cancer [Fatal]
  - Diarrhoea [Not Recovered/Not Resolved]
  - Stomatitis [Not Recovered/Not Resolved]
  - Pyrexia [Not Recovered/Not Resolved]
  - Off label use [Unknown]
